FAERS Safety Report 7627067-1 (Version None)
Quarter: 2011Q3

REPORT INFORMATION
  Report Type: 
  Country: None (occurrence: None)
  Receive Date: 20110714
  Receipt Date: 20110701
  Transmission Date: 20111222
  Serious: Yes (Other)
  Sender: FDA-Public Use
  Company Number: GER/GER/11/0018910

PATIENT
  Age: 28 Year
  Sex: Female
  Weight: 94 kg

DRUGS (3)
  1. PAROXAT (PAROXETINE) [Suspect]
     Indication: ANXIETY DISORDER
     Dosage: 10 MG, 1 IN 1 D, ORAL
     Route: 048
     Dates: start: 20090527
  2. ALPROZOLAM (ALPRAZOLAM) [Concomitant]
  3. CITALOPRAM HYDROBROMIDE [Suspect]
     Indication: DEPRESSION
     Dosage: 15 MG, 1 IN 1 D, ORAL
     Route: 048

REACTIONS (4)
  - INDUCED LABOUR [None]
  - PRE-ECLAMPSIA [None]
  - MATERNAL EXPOSURE DURING PREGNANCY [None]
  - OEDEMA [None]
